FAERS Safety Report 20770557 (Version 1)
Quarter: 2022Q2

REPORT INFORMATION
  Report Type: Spontaneous
  Country: US (occurrence: US)
  Receive Date: 20220429
  Receipt Date: 20220429
  Transmission Date: 20220721
  Serious: No
  Sender: FDA-Public Use
  Company Number: US-PFIZER INC-202200434842

PATIENT
  Age: 65 Year
  Sex: Female

DRUGS (1)
  1. IBRANCE [Suspect]
     Active Substance: PALBOCICLIB
     Dosage: 100 MG, CYCLIC (TAKE 1 100MG TABLET BY MOUTH DAILY FOR 21 DAYS ON THEN 7 DAYS OFF AND REPEAT)
     Route: 048
     Dates: start: 20211015

REACTIONS (3)
  - Chills [Unknown]
  - Night sweats [Unknown]
  - Nausea [Unknown]
